FAERS Safety Report 12848040 (Version 1)
Quarter: 2016Q4

REPORT INFORMATION
  Report Type: Spontaneous
  Country: US (occurrence: US)
  Receive Date: 20161014
  Receipt Date: 20161014
  Transmission Date: 20170207
  Serious: No
  Sender: FDA-Public Use
  Company Number: US-JNJFOC-20160711044

PATIENT
  Age: 20 Month
  Sex: Female
  Weight: 11.79 kg

DRUGS (2)
  1. CHILDRENS MOTRIN [Suspect]
     Active Substance: IBUPROFEN
     Route: 048
  2. CHILDRENS MOTRIN [Suspect]
     Active Substance: IBUPROFEN
     Indication: TEETHING
     Dosage: 2X WITHIN A FEW MINUTES
     Route: 048
     Dates: start: 20160712, end: 20160712

REACTIONS (2)
  - Drug administration error [Unknown]
  - Extra dose administered [Unknown]
